FAERS Safety Report 4700075-6 (Version None)
Quarter: 2005Q2

REPORT INFORMATION
  Report Type: 
  Country: None (occurrence: None)
  Receive Date: 20050627
  Receipt Date: 20050615
  Transmission Date: 20051028
  Serious: Yes (Hospitalization)
  Sender: FDA-Public Use
  Company Number: CN-BRISTOL-MYERS SQUIBB COMPANY-13003462

PATIENT
  Age: 55 Year
  Sex: Male

DRUGS (1)
  1. CEFZIL [Suspect]
     Indication: NASOPHARYNGITIS
     Route: 048
     Dates: start: 20050518, end: 20050519

REACTIONS (1)
  - DERMATITIS EXFOLIATIVE [None]
